FAERS Safety Report 14030045 (Version 2)
Quarter: 2017Q4

REPORT INFORMATION
  Report Type: Spontaneous
  Country: US (occurrence: US)
  Receive Date: 20171002
  Receipt Date: 20171206
  Transmission Date: 20180321
  Serious: Yes (Hospitalization, Other)
  Sender: FDA-Public Use
  Company Number: US-ENDO PHARMACEUTICALS INC-2017-005258

PATIENT
  Age: 64 Year
  Sex: Female

DRUGS (1)
  1. SUMAVEL DOSEPRO [Suspect]
     Active Substance: SUMATRIPTAN SUCCINATE
     Indication: MIGRAINE
     Dosage: 6 MG, INJECT FOR MIGRAINE, UNKNOWN
     Route: 058

REACTIONS (7)
  - Wrong technique in product usage process [Unknown]
  - Sedation [Unknown]
  - Nausea [Unknown]
  - Migraine [Unknown]
  - Subarachnoid haematoma [Unknown]
  - Drug effect decreased [Unknown]
  - Meningitis [Unknown]

NARRATIVE: CASE EVENT DATE: 2017
